FAERS Safety Report 10947972 (Version 1)
Quarter: 2015Q1

REPORT INFORMATION
  Report Type: Spontaneous
  Country: US (occurrence: US)
  Receive Date: 20150324
  Receipt Date: 20150324
  Transmission Date: 20150721
  Serious: Yes (Other)
  Sender: FDA-Public Use
  Company Number: US-BEH-2015049722

PATIENT
  Age: 61 Year
  Sex: Male
  Weight: 88.5 kg

DRUGS (21)
  1. CYANOCOBALAMIN. [Concomitant]
     Active Substance: CYANOCOBALAMIN
  2. LEVAQUIN [Concomitant]
     Active Substance: LEVOFLOXACIN
  3. METOPROLOL [Concomitant]
     Active Substance: METOPROLOL
  4. LEVAQUIN [Concomitant]
     Active Substance: LEVOFLOXACIN
  5. IBUPROFEN. [Concomitant]
     Active Substance: IBUPROFEN
  6. DIPHENHYDRAMINE [Concomitant]
     Active Substance: DIPHENHYDRAMINE
  7. HEPARIN [Concomitant]
     Active Substance: HEPARIN SODIUM
  8. PROTONIX [Concomitant]
     Active Substance: PANTOPRAZOLE SODIUM
  9. EPIPEN [Concomitant]
     Active Substance: EPINEPHRINE
  10. PREDNISONE. [Concomitant]
     Active Substance: PREDNISONE
  11. PRIVIGEN [Suspect]
     Active Substance: HUMAN IMMUNOGLOBULIN G
     Indication: IMMUNODEFICIENCY
     Dosage: 5 GM VIAL;DOSING PERIOD 26-FEB-2015 TO 25-MAR-2015
     Route: 042
  12. SODIUM CHLORIDE. [Concomitant]
     Active Substance: SODIUM CHLORIDE
  13. ACETAMINOPHEN. [Concomitant]
     Active Substance: ACETAMINOPHEN
  14. ALLEGRA [Concomitant]
     Active Substance: FEXOFENADINE HYDROCHLORIDE
  15. PRIVIGEN [Suspect]
     Active Substance: HUMAN IMMUNOGLOBULIN G
     Indication: IMMUNODEFICIENCY COMMON VARIABLE
     Dosage: 10 GM VIAL;DOSING PERIOD 26-FEB-2015 TO 25-MAR-2015
     Route: 042
  16. PRIVIGEN [Suspect]
     Active Substance: HUMAN IMMUNOGLOBULIN G
     Indication: SELECTIVE IGG SUBCLASS DEFICIENCY
     Dosage: 20 GM VIAL;DOSING PERIOD 26-FEB-2015 TO 25-MAR-2015
     Route: 042
  17. LIDOCAINE. [Concomitant]
     Active Substance: LIDOCAINE
  18. ETODOLAC. [Concomitant]
     Active Substance: ETODOLAC
  19. MUCINEX [Concomitant]
     Active Substance: GUAIFENESIN
  20. SINGULAIR [Concomitant]
     Active Substance: MONTELUKAST SODIUM
  21. VALTREX [Concomitant]
     Active Substance: VALACYCLOVIR HYDROCHLORIDE

REACTIONS (1)
  - Respiratory tract infection [Recovered/Resolved]

NARRATIVE: CASE EVENT DATE: 20150226
